FAERS Safety Report 24337921 (Version 1)
Quarter: 2024Q3

REPORT INFORMATION
  Report Type: Spontaneous
  Country: CH (occurrence: CH)
  Receive Date: 20240919
  Receipt Date: 20240919
  Transmission Date: 20241016
  Serious: Yes (Hospitalization)
  Sender: TEVA
  Company Number: None

PATIENT
  Age: 64 Year
  Sex: Female

DRUGS (10)
  1. METHOTREXATE [Suspect]
     Active Substance: METHOTREXATE
     Indication: Chronic myeloid leukaemia
     Dosage: TIME INTERVAL: CYCLICAL: SEVENTH CYCLE OF THERAPY ADMINISTERED ON 23.7.24, METHOTREXATE TEVA
     Route: 037
     Dates: start: 20231025, end: 20240723
  2. CYTARABINE [Suspect]
     Active Substance: CYTARABINE
     Indication: Chronic myeloid leukaemia
     Dosage: TIME INTERVAL: CYCLICAL: SEVENTH CYCLE OF THERAPY ADMINISTERED ON 23.7.24
     Route: 037
     Dates: start: 20231025, end: 20240723
  3. ICLUSIG [Suspect]
     Active Substance: PONATINIB\PONATINIB HYDROCHLORIDE
     Indication: Chronic myeloid leukaemia
     Dosage: TIME INTERVAL: CYCLICAL: ICLUSIG 15 MG/DAY, FIFTH CYCLE OF THERAPY (ADMINISTERED ON 04/30/2024)
     Route: 048
     Dates: start: 20231107, end: 20240430
  4. BLINCYTO [Suspect]
     Active Substance: BLINATUMOMAB
     Indication: Chronic myeloid leukaemia
     Dosage: TIME INTERVAL: CYCLICAL: BLINCYTO 28 UG/DAY, D1-D28, FIFTH CYCLE OF THERAPY (ADMINISTERED ON 04/3...
     Route: 040
     Dates: start: 20231107, end: 20240430
  5. SOLU-CORTEF [Suspect]
     Active Substance: HYDROCORTISONE SODIUM SUCCINATE
     Indication: Chronic myeloid leukaemia
     Dosage: TIME INTERVAL: CYCLICAL: SEVENTH CYCLE OF THERAPY ADMINISTERED ON 23.7.24
     Route: 037
     Dates: start: 20231025, end: 20240723
  6. CO CANDESARTAN SPIRIG [Concomitant]
     Indication: Product used for unknown indication
     Dosage: CHRONIC THERAPY 1 DF = CO-CANDESARTAN SPIRIG-HC 16/12.5 MG (1 {DF})
     Route: 048
  7. VALACYCLOVIR HYDROCHLORIDE [Concomitant]
     Active Substance: VALACYCLOVIR HYDROCHLORIDE
     Indication: Product used for unknown indication
     Dosage: CHRONIC THERAPY, 500 MG 2XDAY
     Route: 048
  8. BACTRIM [Concomitant]
     Active Substance: SULFAMETHOXAZOLE\TRIMETHOPRIM
     Indication: Product used for unknown indication
     Dosage: TIME INTERVAL: 0.33333333 WEEKS: 800/160 MG, 1 TABLET 3 TIMES A WEEK, CHRONIC THERAPY (1 {DF})
     Route: 048
  9. AMLODIPINE MESYLATE [Concomitant]
     Active Substance: AMLODIPINE MESYLATE
     Indication: Product used for unknown indication
     Dosage: CHRONIC THERAPY, 10 MG 1XDAY
     Route: 048
  10. FOLIC ACID [Concomitant]
     Active Substance: FOLIC ACID
     Indication: Product used for unknown indication
     Dosage: CHRONIC THERAPY, 5 MG 1XDAY
     Route: 048

REACTIONS (1)
  - Acute psychosis [Recovering/Resolving]

NARRATIVE: CASE EVENT DATE: 20240731
